FAERS Safety Report 21755410 (Version 1)
Quarter: 2022Q4

REPORT INFORMATION
  Report Type: Spontaneous
  Country: US (occurrence: US)
  Receive Date: 20221220
  Receipt Date: 20221220
  Transmission Date: 20230113
  Serious: Yes (Disabling, Other)
  Sender: FDA-Public Use
  Company Number: US-AMICUS THERAPEUTICS, INC.-AMI_1568

PATIENT
  Age: 69 Year
  Sex: Female
  Weight: 54.422 kg

DRUGS (9)
  1. GALAFOLD [Suspect]
     Active Substance: MIGALASTAT HYDROCHLORIDE
     Indication: Fabry^s disease
     Dosage: 123 MILLIGRAM, QOD
     Route: 048
     Dates: start: 20190604
  2. LEVOTHYROXINE SODIUM [Concomitant]
     Active Substance: LEVOTHYROXINE SODIUM
     Indication: Product used for unknown indication
     Dosage: UNK
     Route: 065
  3. FUROSEMIDE [Concomitant]
     Active Substance: FUROSEMIDE
     Indication: Product used for unknown indication
     Dosage: UNK
     Route: 065
  4. POTASSIUM CHLORIDE [Concomitant]
     Active Substance: POTASSIUM CHLORIDE
     Indication: Product used for unknown indication
     Dosage: UNK
     Route: 065
  5. SPIRONOLACTONE [Concomitant]
     Active Substance: SPIRONOLACTONE
     Indication: Product used for unknown indication
     Dosage: UNK
     Route: 065
  6. METHYLPHENIDATE [Concomitant]
     Active Substance: METHYLPHENIDATE
     Indication: Product used for unknown indication
     Dosage: UNK
     Route: 065
  7. GUAIFENESIN AND DEXTROMETHORPHAN [Concomitant]
     Active Substance: DEXTROMETHORPHAN\GUAIFENESIN
     Indication: Product used for unknown indication
     Dosage: UNK
     Route: 065
  8. ESTRADIOL [Concomitant]
     Active Substance: ESTRADIOL
     Indication: Product used for unknown indication
     Dosage: UNK
     Route: 065
  9. VITAMIN D3 [Concomitant]
     Active Substance: CHOLECALCIFEROL
     Indication: Product used for unknown indication
     Dosage: UNK
     Route: 065

REACTIONS (25)
  - Deafness [Recovering/Resolving]
  - Hypothyroidism [Recovering/Resolving]
  - COVID-19 [Unknown]
  - Lymphatic disorder [Unknown]
  - Lymphadenopathy [Recovering/Resolving]
  - Immunisation reaction [Unknown]
  - Urine output decreased [Recovering/Resolving]
  - Asthenia [Unknown]
  - Breast tenderness [Unknown]
  - Drug ineffective [Unknown]
  - Hormone level abnormal [Recovering/Resolving]
  - Seasonal allergy [Recovering/Resolving]
  - Swelling face [Recovering/Resolving]
  - Swelling [Recovering/Resolving]
  - Fluid retention [Recovering/Resolving]
  - Decreased appetite [Unknown]
  - Weight increased [Recovering/Resolving]
  - Depression [Unknown]
  - Pain [Recovering/Resolving]
  - Tinnitus [Unknown]
  - Tooth disorder [Unknown]
  - Gingival disorder [Recovering/Resolving]
  - Anaemia [Unknown]
  - Vitiligo [Unknown]
  - Stress [Unknown]

NARRATIVE: CASE EVENT DATE: 20210401
